FAERS Safety Report 5457987-8 (Version None)
Quarter: 2007Q3

REPORT INFORMATION
  Report Type: 
  Country: None (occurrence: None)
  Receive Date: 20070917
  Receipt Date: 20070910
  Transmission Date: 20080115
  Serious: Yes (Other)
  Sender: FDA-Public Use
  Company Number: 163-21880-07090453

PATIENT
  Age: 64 Year
  Sex: Male

DRUGS (2)
  1. REVLIMID [Suspect]
     Indication: MULTIPLE MYELOMA
     Dosage: 25 MG, DAILY FOR 21 DAYS, ORAL; 25 MG, DAILY FOR 21 DAYS, ORAL
     Route: 048
     Dates: start: 20060801, end: 20070701
  2. REVLIMID [Suspect]
     Indication: MULTIPLE MYELOMA
     Dosage: 25 MG, DAILY FOR 21 DAYS, ORAL; 25 MG, DAILY FOR 21 DAYS, ORAL
     Route: 048
     Dates: start: 20070911

REACTIONS (1)
  - ULCER HAEMORRHAGE [None]
